FAERS Safety Report 9908328 (Version 1)
Quarter: 2014Q1

REPORT INFORMATION
  Report Type: Spontaneous
  Country: US (occurrence: None)
  Receive Date: 20140212
  Receipt Date: 20140212
  Transmission Date: 20141002
  Serious: Yes (Other)
  Sender: FDA-Public Use
  Company Number: None

PATIENT
  Age: 90 Year
  Sex: Female
  Weight: 56.25 kg

DRUGS (1)
  1. PROLIA [Suspect]

REACTIONS (7)
  - Pruritus [None]
  - Rash [None]
  - Burning sensation [None]
  - Ear discomfort [None]
  - Burning sensation [None]
  - Pain in extremity [None]
  - Arthralgia [None]
